FAERS Safety Report 5814317-7 (Version None)
Quarter: 2008Q4

REPORT INFORMATION
  Report Type: 
  Country: None (occurrence: None)
  Receive Date: 20080715
  Receipt Date: 20080603
  Transmission Date: 20090506
  Serious: Yes (Hospitalization)
  Sender: FDA-Public Use
  Company Number: 2008001559

PATIENT
  Age: 59 Year
  Sex: Female

DRUGS (5)
  1. ERLOTINIB [Suspect]
     Indication: NON-SMALL CELL LUNG CANCER
     Dosage: ORAL
     Route: 048
     Dates: start: 20080324, end: 20080505
  2. BEVACIZUMAB [Suspect]
     Dosage: INTRAVENOUS
     Route: 042
     Dates: start: 20080324, end: 20080505
  3. CARBOPLATIN [Suspect]
     Dates: start: 20080324, end: 20080505
  4. PACLITAXEL [Suspect]
     Dates: start: 20080324, end: 20080505
  5. RADIATION THERAPY [Suspect]

REACTIONS (11)
  - ASTHENIA [None]
  - CHROMATURIA [None]
  - DYSPEPSIA [None]
  - GASTROOESOPHAGEAL REFLUX DISEASE [None]
  - HERPES ZOSTER [None]
  - HYPOPHAGIA [None]
  - HYPOVOLAEMIA [None]
  - RADIATION OESOPHAGITIS [None]
  - SKIN LESION [None]
  - URINE OUTPUT DECREASED [None]
  - VOMITING [None]
